FAERS Safety Report 8262406-2 (Version None)
Quarter: 2012Q2

REPORT INFORMATION
  Report Type: 
  Country: None (occurrence: None)
  Receive Date: 20120405
  Receipt Date: 20120329
  Transmission Date: 20120825
  Serious: Yes (Other)
  Sender: FDA-Public Use
  Company Number: US-JNJFOC-20120400098

PATIENT
  Age: 46 Year
  Sex: Female
  Weight: 75.75 kg

DRUGS (2)
  1. ZYRTEC-D 12 HOUR [Suspect]
     Indication: MULTIPLE ALLERGIES
     Dosage: FOR ABOUT A MONTH
     Route: 048
     Dates: start: 20120303
  2. ZYRTEC-D 12 HOUR [Suspect]
     Route: 048

REACTIONS (4)
  - CONSTIPATION [None]
  - CHOLELITHIASIS [None]
  - BLOOD POTASSIUM DECREASED [None]
  - DEHYDRATION [None]
